FAERS Safety Report 15710719 (Version 1)
Quarter: 2018Q4

REPORT INFORMATION
  Report Type: Report from Study
  Country: ZA (occurrence: ZA)
  Receive Date: 20181211
  Receipt Date: 20181211
  Transmission Date: 20190205
  Serious: Yes (Life-Threatening)
  Sender: FDA-Public Use
  Company Number: ZA-SAKK-2018SA331360AA

PATIENT
  Age: 43 Year
  Sex: Male

DRUGS (4)
  1. OPTISULIN (INSULIN GLARGINE) [Suspect]
     Active Substance: INSULIN GLARGINE
     Dosage: 40 U AT BT (BEDTIME), QD
     Dates: start: 20181114
  2. NO STUDY DRUG GIVEN [Suspect]
     Active Substance: UNSPECIFIED INGREDIENT
     Dosage: UNK
  3. GLUCOPHAGE [Concomitant]
     Active Substance: METFORMIN HYDROCHLORIDE
     Dosage: BS-2000 MG, QD
     Dates: start: 20181116
  4. APIDRA [Suspect]
     Active Substance: INSULIN GLULISINE
     Dosage: 5 U, TID AT BEFORE SUPPER (BS), BEFORE BREAKFAST (BB), BEFORE BREAKFAST (BB)
     Dates: start: 20181114

REACTIONS (2)
  - Product dose omission [Unknown]
  - Visual impairment [Not Recovered/Not Resolved]
